APPROVED DRUG PRODUCT: FRAGMIN
Active Ingredient: DALTEPARIN SODIUM
Strength: 95,000IU/9.5ML (10,000IU/ML)
Dosage Form/Route: INJECTABLE;SUBCUTANEOUS
Application: N020287 | Product #007
Applicant: PFIZER INC
Approved: Apr 4, 2002 | RLD: No | RS: No | Type: DISCN